FAERS Safety Report 6298238-4 (Version None)
Quarter: 2009Q3

REPORT INFORMATION
  Report Type: 
  Country: None (occurrence: None)
  Receive Date: 20090805
  Receipt Date: 20090727
  Transmission Date: 20100115
  Serious: Yes (Death)
  Sender: FDA-Public Use
  Company Number: US-PFIZER INC-2009212384

PATIENT
  Sex: Male

DRUGS (6)
  1. SUTENT [Suspect]
     Indication: METASTATIC RENAL CELL CARCINOMA
  2. DECADRON [Concomitant]
  3. PRILOSEC [Concomitant]
  4. POTASSIUM [Concomitant]
  5. LASIX [Concomitant]
  6. COMPAZINE [Concomitant]

REACTIONS (10)
  - ABDOMINAL PAIN [None]
  - ASTHENIA [None]
  - CONSTIPATION [None]
  - DEHYDRATION [None]
  - DISEASE PROGRESSION [None]
  - GAIT DISTURBANCE [None]
  - NAUSEA [None]
  - NO THERAPEUTIC RESPONSE [None]
  - OESOPHAGITIS [None]
  - RENAL CELL CARCINOMA [None]
